FAERS Safety Report 6644693-7 (Version None)
Quarter: 2010Q1

REPORT INFORMATION
  Report Type: 
  Country: None (occurrence: None)
  Receive Date: 20100318
  Receipt Date: 20100318
  Transmission Date: 20100710
  Serious: Yes (Hospitalization)
  Sender: FDA-Public Use
  Company Number: None

PATIENT
  Age: 64 Year
  Sex: Male
  Weight: 100.9 kg

DRUGS (2)
  1. IODIXANOL [Suspect]
     Indication: CARDIOVASCULAR DISORDER
     Dates: start: 20090930, end: 20090930
  2. IODIXANOL [Suspect]
     Indication: SURGERY
     Dates: start: 20090930, end: 20090930

REACTIONS (1)
  - ANAPHYLACTIC REACTION [None]
